FAERS Safety Report 11309133 (Version 1)
Quarter: 2015Q3

REPORT INFORMATION
  Report Type: Spontaneous
  Country: FR (occurrence: FR)
  Receive Date: 20150724
  Receipt Date: 20150724
  Transmission Date: 20151125
  Serious: Yes (Hospitalization)
  Sender: FDA-Public Use
  Company Number: FR-ASTRAZENECA-2015SE70762

PATIENT
  Age: 31079 Day
  Sex: Female

DRUGS (8)
  1. IMOVANE [Concomitant]
     Active Substance: ZOPICLONE
  2. DEDROGYL [Concomitant]
     Active Substance: CALCIFEDIOL
  3. XYZALL [Concomitant]
     Active Substance: LEVOCETIRIZINE DIHYDROCHLORIDE
  4. ATORVASTATINE [Concomitant]
     Active Substance: ATORVASTATIN
  5. HYTACAND [Suspect]
     Active Substance: CANDESARTAN CILEXETIL\HYDROCHLOROTHIAZIDE
     Indication: HYPERTENSION
     Dosage: 8 MG / 12.5 MG,  2 DF DAILY
     Route: 048
     Dates: end: 20150603
  6. LASILIX [Suspect]
     Active Substance: FUROSEMIDE
     Indication: HYPERTENSION
     Route: 048
     Dates: end: 20150603
  7. KARDEGIC [Concomitant]
     Active Substance: ASPIRIN LYSINE
  8. INIPOMP [Concomitant]
     Active Substance: PANTOPRAZOLE SODIUM

REACTIONS (2)
  - Infection [Unknown]
  - Hypokalaemia [Recovered/Resolved]

NARRATIVE: CASE EVENT DATE: 20150603
